FAERS Safety Report 4748805-1 (Version None)
Quarter: 2005Q3

REPORT INFORMATION
  Report Type: 
  Country: None (occurrence: None)
  Receive Date: 20050819
  Receipt Date: 20050801
  Transmission Date: 20060218
  Serious: Yes (Other)
  Sender: FDA-Public Use
  Company Number: PHEH2005US08480

PATIENT
  Age: 65 Year
  Sex: Female

DRUGS (2)
  1. ZOMETA [Suspect]
     Indication: BREAST CANCER METASTATIC
     Dosage: 1500 MG BID FOR 2 WEEKS 1 WEEK OFF
     Dates: end: 20050428
  2. ZOMETA [Suspect]
     Dosage: 4 MG Q4WEEKS
     Dates: start: 20011208, end: 20041012

REACTIONS (3)
  - ASEPTIC NECROSIS BONE [None]
  - BONE DISORDER [None]
  - OSTEONECROSIS [None]
